FAERS Safety Report 8277787-3 (Version None)
Quarter: 2012Q2

REPORT INFORMATION
  Report Type: 
  Country: None (occurrence: None)
  Receive Date: 20120412
  Receipt Date: 20120328
  Transmission Date: 20120825
  Serious: Yes (Hospitalization, Other)
  Sender: FDA-Public Use
  Company Number: JP-ASTELLAS-2012US000750

PATIENT
  Sex: Male
  Weight: 62 kg

DRUGS (9)
  1. ERLOTINIB HYDROCHLORIDE [Suspect]
     Dosage: 100 MG, UID/QD
     Route: 048
     Dates: start: 20120202
  2. GEMCITABINE HYDROCHLORIDE [Suspect]
     Dosage: 1000 MG/M2, WEEKLY
     Route: 041
     Dates: start: 20111108, end: 20111122
  3. ERLOTINIB HYDROCHLORIDE [Suspect]
     Dosage: 100 MG, UID/QD
     Route: 048
     Dates: start: 20111108, end: 20120126
  4. GEMCITABINE HYDROCHLORIDE [Suspect]
     Dosage: 1000 MG/M2, WEEKLY
     Route: 041
     Dates: start: 20120105
  5. GEMCITABINE HYDROCHLORIDE [Suspect]
     Dosage: 1000 MG/M2, WEEKLY
     Route: 041
     Dates: start: 20111206, end: 20111213
  6. FLUTAMIDE [Concomitant]
     Indication: PRODUCT USED FOR UNKNOWN INDICATION
     Dosage: 250 MG, UID/QD
     Route: 048
  7. GEMCITABINE HYDROCHLORIDE [Suspect]
     Indication: ADENOCARCINOMA PANCREAS
     Dosage: 1000 MG/M2, WEEKLY
     Route: 041
     Dates: start: 20111004, end: 20111011
  8. CASODEX [Concomitant]
     Indication: PROSTATE CANCER
     Dosage: 80 MG, UID/QD
     Route: 048
     Dates: start: 20120202, end: 20120315
  9. ERLOTINIB HYDROCHLORIDE [Suspect]
     Indication: ADENOCARCINOMA PANCREAS
     Dosage: 100 MG, UID/QD
     Route: 048
     Dates: start: 20111004, end: 20111025

REACTIONS (3)
  - HYPERGLYCAEMIA [None]
  - C-REACTIVE PROTEIN INCREASED [None]
  - CHOLANGITIS [None]
